FAERS Safety Report 8988633 (Version 1)
Quarter: 2012Q4

REPORT INFORMATION
  Report Type: 
  Country: US (occurrence: US)
  Receive Date: 20121228
  Receipt Date: 20121228
  Transmission Date: 20130627
  Serious: Yes (Hospitalization)
  Sender: FDA-Public Use
  Company Number: US-SANOFI-AVENTIS-2012SA094170

PATIENT
  Sex: Female

DRUGS (4)
  1. ZALTRAP [Suspect]
     Route: 041
  2. FOLIC ACID [Suspect]
     Route: 042
  3. FLUOROURACIL [Suspect]
     Route: 042
  4. IRINOTECAN [Suspect]
     Route: 042

REACTIONS (2)
  - Fall [Recovering/Resolving]
  - Clavicle fracture [Recovering/Resolving]
